FAERS Safety Report 8472449-1 (Version None)
Quarter: 2012Q2

REPORT INFORMATION
  Report Type: 
  Country: None (occurrence: None)
  Receive Date: 20120627
  Receipt Date: 20111126
  Transmission Date: 20120825
  Serious: No
  Sender: FDA-Public Use
  Company Number: US-AMGEN-USASP2011052761

PATIENT
  Age: 56 Year
  Sex: Male
  Weight: 103 kg

DRUGS (18)
  1. ARANESP [Suspect]
     Indication: RENAL FAILURE CHRONIC
     Dosage: 50 MUG, QWK
     Route: 042
     Dates: start: 20110929, end: 20111011
  2. PHOSLO [Concomitant]
     Indication: PHOSPHORUS METABOLISM DISORDER
     Dosage: UNK UNK, Q8H
     Route: 048
     Dates: start: 20111108
  3. PLAVIX [Concomitant]
     Indication: COAGULOPATHY
     Dosage: 75 MG, QD
     Route: 048
     Dates: start: 20110707
  4. TRICOR [Concomitant]
     Indication: HYPERLIPIDAEMIA
     Dosage: 145 MG, QD
     Route: 048
     Dates: start: 20110707
  5. PROCRIT [Suspect]
     Dosage: UNK
     Dates: start: 20110601, end: 20110601
  6. VASOTEC [Concomitant]
     Indication: HYPERTENSION
     Dosage: 10 MG, Q12H
     Route: 048
     Dates: start: 20110621
  7. HYDRALAZINE HYDROCHLORIDE [Concomitant]
     Dosage: UNK
  8. CALCIUM CARBONATE [Concomitant]
     Indication: PHOSPHORUS METABOLISM DISORDER
     Dosage: UNK
     Dates: start: 20110628
  9. VENOFER [Concomitant]
     Indication: IRON DEFICIENCY ANAEMIA
     Dosage: UNK
     Route: 042
     Dates: start: 20110623, end: 20110702
  10. VENOFER [Concomitant]
     Dosage: 50 MG, QWK
     Dates: start: 20110705
  11. EPOGEN [Suspect]
     Indication: RENAL FAILURE CHRONIC
     Dosage: UNK
  12. NORMODYNE [Concomitant]
     Indication: HYPERTENSION
     Dosage: 200 MG, QD
     Route: 048
     Dates: start: 20110707
  13. SIMVASTATIN [Concomitant]
     Indication: HYPERLIPIDAEMIA
     Dosage: 40 MG, QD
     Route: 048
     Dates: start: 20110707
  14. NEPHROVITE [Concomitant]
     Dosage: UNK
     Dates: start: 20110628
  15. CLONIDINE [Concomitant]
     Dosage: UNK
  16. FOLIC ACID [Concomitant]
     Dosage: 1 MG, Q12H
     Dates: start: 20110628
  17. ARANESP [Suspect]
     Indication: ANAEMIA
     Dosage: 80 MUG, QWK
     Dates: start: 20110601, end: 20110601
  18. LOVAZA [Concomitant]
     Indication: HYPERLIPIDAEMIA
     Dosage: 1 G, Q12H
     Route: 048
     Dates: start: 20110707

REACTIONS (5)
  - URTICARIA [None]
  - ANAEMIA [None]
  - PERIVASCULAR DERMATITIS [None]
  - BLOOD PRESSURE INADEQUATELY CONTROLLED [None]
  - DRUG HYPERSENSITIVITY [None]
